FAERS Safety Report 5199085-7 (Version None)
Quarter: 2007Q1

REPORT INFORMATION
  Report Type: 
  Country: None (occurrence: None)
  Receive Date: 20070104
  Receipt Date: 20061221
  Transmission Date: 20070707
  Serious: Yes (Hospitalization, Other)
  Sender: FDA-Public Use
  Company Number: US-SHR-US-2006-025863

PATIENT
  Age: 56 Year
  Sex: Female
  Weight: 99.773 kg

DRUGS (10)
  1. BETASERON [Suspect]
     Indication: RELAPSING-REMITTING MULTIPLE SCLEROSIS
     Route: 058
     Dates: start: 19990116, end: 20010101
  2. BETASERON [Suspect]
     Dosage: 8 MIU, EVERY 2D
     Route: 058
     Dates: start: 20050318
  3. BENICAR [Concomitant]
     Indication: HYPERTENSION
     Dosage: 40 MG/D, UNK
  4. TOPROL-XL [Concomitant]
     Indication: HYPERTENSION
     Dosage: 200 MG/D, UNK
  5. LISINOPRIL [Concomitant]
     Indication: HYPERTENSION
     Dosage: 40 MG, 2X/DAY
  6. LASIX [Concomitant]
     Indication: HYPERTENSION
     Dosage: 100 MG/D, UNK
  7. ALLOPURINOL SODIUM [Concomitant]
     Indication: BLOOD URIC ACID
     Dosage: 300 MG/D, UNK
     Route: 048
     Dates: start: 20050708
  8. PREVACID [Concomitant]
     Dosage: 30 MG/D, UNK
     Route: 048
     Dates: start: 20050820
  9. TYLENOL [Concomitant]
     Dosage: UNK, AS REQ'D
  10. ALGICON [Concomitant]
     Dosage: 40 MG/D, UNK
     Route: 048
     Dates: start: 20050908

REACTIONS (7)
  - CHOLECYSTITIS [None]
  - CHOLELITHIASIS [None]
  - DIARRHOEA [None]
  - GALLBLADDER DISORDER [None]
  - HEPATIC CIRRHOSIS [None]
  - MULTIPLE SCLEROSIS [None]
  - PROCEDURAL HYPERTENSION [None]
